FAERS Safety Report 5178075-4 (Version None)
Quarter: 2006Q4

REPORT INFORMATION
  Report Type: 
  Country: None (occurrence: None)
  Receive Date: 20061218
  Receipt Date: 20060728
  Transmission Date: 20070319
  Serious: No
  Sender: FDA-Public Use
  Company Number: US-AMGEN-KDL188255

PATIENT
  Sex: Female

DRUGS (2)
  1. ENBREL [Suspect]
     Indication: RHEUMATOID ARTHRITIS
     Route: 058
     Dates: start: 20010701
  2. METHOTREXATE [Concomitant]
     Dates: start: 19930101

REACTIONS (13)
  - ABDOMINAL PAIN UPPER [None]
  - ANIMAL BITE [None]
  - CHILLS [None]
  - CONTRAST MEDIA REACTION [None]
  - DISORIENTATION [None]
  - GALLBLADDER DISORDER [None]
  - NAUSEA [None]
  - NERVOUSNESS [None]
  - SWELLING [None]
  - TREMOR [None]
  - URTICARIA [None]
  - VACCINATION COMPLICATION [None]
  - WEIGHT DECREASED [None]
